FAERS Safety Report 5208914-X (Version None)
Quarter: 2007Q1

REPORT INFORMATION
  Report Type: 
  Country: None (occurrence: None)
  Receive Date: 20070111
  Receipt Date: 20070111
  Transmission Date: 20070707
  Serious: Yes (Hospitalization)
  Sender: FDA-Public Use
  Company Number: None

PATIENT
  Age: 73 Year
  Sex: Male
  Weight: 53.5 kg

DRUGS (1)
  1. TENOFOVIR [Suspect]
     Indication: HIV INFECTION
     Dosage: 300MG, 300MG QD, ORAL
     Route: 048
     Dates: start: 20060526, end: 20061117

REACTIONS (1)
  - RENAL FAILURE [None]
